FAERS Safety Report 12331391 (Version 2)
Quarter: 2016Q4

REPORT INFORMATION
  Report Type: Spontaneous
  Country: US (occurrence: US)
  Receive Date: 20160504
  Receipt Date: 20161205
  Transmission Date: 20170207
  Serious: Yes (Death, Other)
  Sender: FDA-Public Use
  Company Number: US-009507513-1405GBR007457

PATIENT
  Age: 22 Year
  Sex: Male

DRUGS (1)
  1. PROPECIA [Suspect]
     Active Substance: FINASTERIDE
     Indication: ALOPECIA
     Dosage: UNK
     Route: 048

REACTIONS (8)
  - Quality of life decreased [Unknown]
  - Completed suicide [Fatal]
  - Confusional state [Unknown]
  - Insomnia [Unknown]
  - Erectile dysfunction [Unknown]
  - Adverse event [Unknown]
  - Depression [Unknown]
  - Injury [Unknown]

NARRATIVE: CASE EVENT DATE: 2008
